FAERS Safety Report 20861736 (Version 1)
Quarter: 2022Q2

REPORT INFORMATION
  Report Type: Spontaneous
  Country: US (occurrence: US)
  Receive Date: 20220523
  Receipt Date: 20220523
  Transmission Date: 20220721
  Serious: No
  Sender: FDA-Public Use
  Company Number: US-PFIZER INC-202200716852

PATIENT
  Age: 21 Year
  Sex: Female

DRUGS (1)
  1. PAXLOVID [Suspect]
     Active Substance: NIRMATRELVIR\RITONAVIR
     Indication: COVID-19 treatment
     Dosage: UNK
     Dates: start: 20220510, end: 20220514

REACTIONS (3)
  - Taste disorder [Recovering/Resolving]
  - Gingival swelling [Recovering/Resolving]
  - Mastication disorder [Recovering/Resolving]

NARRATIVE: CASE EVENT DATE: 20220511
